FAERS Safety Report 9231234 (Version 2)
Quarter: 2013Q3

REPORT INFORMATION
  Report Type: Spontaneous
  Country: RU (occurrence: RU)
  Receive Date: 20130415
  Receipt Date: 20130829
  Transmission Date: 20140515
  Serious: Yes (Hospitalization)
  Sender: FDA-Public Use
  Company Number: RU-BIOMARINAP-RU-2013-100628

PATIENT
  Age: 0 Day
  Sex: Male
  Weight: 2.3 kg

DRUGS (2)
  1. ALDURAZYME [Suspect]
     Indication: MUCOPOLYSACCHARIDOSIS I
     Route: 063
  2. BIFIFORM                           /01871701/ [Concomitant]
     Indication: PRODUCT USED FOR UNKNOWN INDICATION
     Dosage: UNK UNK, QD
     Dates: start: 201110

REACTIONS (4)
  - Premature baby [Unknown]
  - Transient tachypnoea of the newborn [Recovered/Resolved]
  - Jaundice neonatal [Recovered/Resolved]
  - Bacterial test positive [Recovered/Resolved]
